FAERS Safety Report 7542953-9 (Version None)
Quarter: 2011Q2

REPORT INFORMATION
  Report Type: 
  Country: None (occurrence: None)
  Receive Date: 20110613
  Receipt Date: 20110531
  Transmission Date: 20111010
  Serious: Yes (Other)
  Sender: FDA-Public Use
  Company Number: PHEH2008US03268

PATIENT
  Sex: Male

DRUGS (33)
  1. ZOMETA [Suspect]
  2. PROSCAR [Concomitant]
  3. LOPRESSOR [Concomitant]
  4. OXYCODONE HCL AND ACETAMINOPHEN [Concomitant]
  5. PLAVIX [Concomitant]
  6. LOVAZA [Concomitant]
     Dosage: 2, TWICE DAILY
  7. OXYCONTIN [Concomitant]
     Dosage: 60 MG, BID
  8. NITROGLYCERIN [Concomitant]
  9. HEPARIN [Concomitant]
  10. ASPIRIN [Concomitant]
  11. LISINOPRIL [Concomitant]
  12. ZETIA [Concomitant]
  13. SIMVASTATIN [Concomitant]
  14. AREDIA [Suspect]
     Indication: METASTASES TO BONE
     Dosage: 90 MG MONTHLY
     Dates: start: 20050101
  15. VERSED [Concomitant]
  16. LORAZEPAM [Concomitant]
     Dosage: 05 MG, Q6H AS NEEDED
  17. OMEPRAZOLE [Concomitant]
     Dosage: 20 MG, DAILY
  18. SYMBICORT [Concomitant]
  19. ASPIRIN [Concomitant]
     Dosage: 325 MG, DAILY
  20. VERAPAMIL [Concomitant]
     Dosage: 2 MG, UNK
  21. CASODEX [Concomitant]
  22. RANEXA [Concomitant]
     Dosage: 1000 MG, BID
  23. INTEGRILIN [Concomitant]
  24. MIDAZOLAM HCL [Concomitant]
     Dosage: 2 MG, UNK
     Route: 042
  25. METOPROLOL SUCCINATE [Concomitant]
     Dosage: 100 MG, BID
  26. MULTI-VITAMIN [Concomitant]
     Dosage: DAILY
  27. PENICILLIN V POTASSIUM [Concomitant]
     Dosage: 400 MG, QID
  28. FENTANYL [Concomitant]
  29. CELEBREX [Concomitant]
  30. LIPITOR [Concomitant]
  31. DILAUDID [Concomitant]
     Dosage: 8 MG, Q4H AS NEEDED
  32. FUROSEMIDE [Concomitant]
     Dosage: 20 MG, DAILY
  33. ISOSORBIDE MONONITRATE [Concomitant]
     Dosage: 90 MG, BID

REACTIONS (21)
  - PAIN [None]
  - LYMPHOCYTE COUNT DECREASED [None]
  - SUBMANDIBULAR MASS [None]
  - CORONARY ARTERY STENOSIS [None]
  - ANXIETY [None]
  - PROSTATIC SPECIFIC ANTIGEN INCREASED [None]
  - NEUTROPHIL COUNT INCREASED [None]
  - HYPERHIDROSIS [None]
  - PULMONARY CONGESTION [None]
  - ANAEMIA [None]
  - NAUSEA [None]
  - BUNDLE BRANCH BLOCK RIGHT [None]
  - DYSPHAGIA [None]
  - SINUS TACHYCARDIA [None]
  - OSTEONECROSIS OF JAW [None]
  - INFECTION [None]
  - DEFORMITY [None]
  - EMOTIONAL DISTRESS [None]
  - ARTERIOSCLEROSIS [None]
  - BLOOD GLUCOSE INCREASED [None]
  - ANGINA UNSTABLE [None]
